FAERS Safety Report 9644897 (Version 1)
Quarter: 2013Q4

REPORT INFORMATION
  Report Type: Spontaneous
  Country: US (occurrence: None)
  Receive Date: 20131023
  Receipt Date: 20131023
  Transmission Date: 20140711
  Serious: No
  Sender: FDA-Public Use
  Company Number: None

PATIENT
  Age: 29 Year
  Sex: Female
  Weight: 58.97 kg

DRUGS (1)
  1. MIDODRINE 10MG UPSHER-SMITH [Suspect]
     Indication: ORTHOSTATIC HYPOTENSION
     Dosage: 1.5 PILLS FOUR TIMES DAILY TAKEN BY MOUTH
     Route: 048
     Dates: start: 20130901, end: 20131022

REACTIONS (3)
  - Product quality issue [None]
  - Therapeutic response decreased [None]
  - Product substitution issue [None]
